FAERS Safety Report 5287885-4 (Version None)
Quarter: 2007Q2

REPORT INFORMATION
  Report Type: 
  Country: None (occurrence: None)
  Receive Date: 20070405
  Receipt Date: 20070328
  Transmission Date: 20071010
  Serious: Yes (Hospitalization)
  Sender: FDA-Public Use
  Company Number: US-JNJFOC-20070201237

PATIENT
  Age: 64 Year
  Sex: Female
  Weight: 99 kg

DRUGS (8)
  1. LEVAQUIN [Suspect]
     Indication: RESPIRATORY TRACT INFECTION
     Route: 048
  2. PLAVIX [Concomitant]
     Route: 065
  3. ATACAND [Concomitant]
     Route: 048
  4. BETA BLOCKER [Concomitant]
     Route: 065
  5. METOPROLOL SUCCINATE [Concomitant]
     Indication: HYPERTENSION
     Route: 065
  6. GLYBURIDE AND METFORMIN HCL [Concomitant]
     Indication: DIABETES MELLITUS
     Route: 065
  7. ASPIRIN [Concomitant]
     Route: 065
  8. VYTORIN [Concomitant]
     Route: 065

REACTIONS (4)
  - ANOXIC ENCEPHALOPATHY [None]
  - CARDIO-RESPIRATORY ARREST [None]
  - HYPOGLYCAEMIA [None]
  - NEUROLOGICAL SYMPTOM [None]
